FAERS Safety Report 9284373 (Version 1)
Quarter: 2013Q2

REPORT INFORMATION
  Report Type: Spontaneous
  Country: US (occurrence: US)
  Receive Date: 20130510
  Receipt Date: 20130510
  Transmission Date: 20140414
  Serious: Yes (Other)
  Sender: FDA-Public Use
  Company Number: CHPA2013US007768

PATIENT
  Age: 59 Year
  Sex: Female

DRUGS (1)
  1. TRANSDERM SCOP [Suspect]
     Indication: MOTION SICKNESS
     Dosage: 0.5 DF, FOR 3 DAYS
     Route: 062

REACTIONS (4)
  - Thyroid disorder [Recovering/Resolving]
  - Hypertension [Recovering/Resolving]
  - Wrong technique in drug usage process [Unknown]
  - Underdose [Unknown]
